FAERS Safety Report 7221502-9 (Version None)
Quarter: 2011Q1

REPORT INFORMATION
  Report Type: 
  Country: None (occurrence: None)
  Receive Date: 20110112
  Receipt Date: 20110105
  Transmission Date: 20110831
  Serious: Yes (Hospitalization)
  Sender: FDA-Public Use
  Company Number: PHHY2011MY01010

PATIENT
  Sex: Male

DRUGS (4)
  1. DESFERAL (NAMED PATIENTS ONLY) [Suspect]
     Indication: THALASSAEMIA
     Dosage: 3 G, DAILY FOR FIVE WEEKS,OVER 8-12 HOURS INFUSIONS
  2. WARFARIN [Concomitant]
  3. DEFERIPRONE [Concomitant]
  4. DIGOXIN [Concomitant]

REACTIONS (4)
  - SERUM FERRITIN INCREASED [None]
  - ENDOCARDITIS [None]
  - INCORRECT DOSE ADMINISTERED [None]
  - URINARY TRACT INFECTION [None]
